FAERS Safety Report 4286671-1 (Version None)
Quarter: 2004Q1

REPORT INFORMATION
  Report Type: 
  Country: None (occurrence: None)
  Receive Date: 20040204
  Receipt Date: 20040127
  Transmission Date: 20041129
  Serious: Yes (Hospitalization)
  Sender: FDA-Public Use
  Company Number: HQWYE578727JAN04

PATIENT
  Age: 42 Year
  Sex: Female

DRUGS (3)
  1. CORDARONE [Suspect]
     Dosage: 200 MG TABLET,
     Route: 048
     Dates: start: 19940101
  2. LASIX [Concomitant]
  3. ORAL ANTICOAGULANT NOS (ORAL ANTICOAGULANT NOS) [Concomitant]

REACTIONS (3)
  - COMA HEPATIC [None]
  - HEPATIC FAILURE [None]
  - HEPATITIS ACUTE [None]
